FAERS Safety Report 5001811-4 (Version None)
Quarter: 2006Q2

REPORT INFORMATION
  Report Type: 
  Country: None (occurrence: None)
  Receive Date: 20060515
  Receipt Date: 20060508
  Transmission Date: 20061013
  Serious: Yes (Hospitalization)
  Sender: FDA-Public Use
  Company Number: US-GLAXOSMITHKLINE-A0604959A

PATIENT
  Age: 62 Year
  Sex: Female
  Weight: 42.7 kg

DRUGS (4)
  1. TOPOTECAN [Suspect]
     Indication: GASTRIC CANCER
     Dosage: 5MG WEEKLY
     Route: 042
     Dates: start: 20060425
  2. PHENERGAN HCL [Concomitant]
  3. ONDANSETRON HCL [Concomitant]
     Route: 042
     Dates: start: 20060425
  4. JEVITY [Concomitant]

REACTIONS (6)
  - DEHYDRATION [None]
  - INTESTINAL OBSTRUCTION [None]
  - INTESTINAL PERFORATION [None]
  - ORTHOSTATIC HYPOTENSION [None]
  - SYNCOPE [None]
  - VOMITING [None]
